FAERS Safety Report 9334334 (Version 1)
Quarter: 2013Q2

REPORT INFORMATION
  Report Type: Spontaneous
  Country: US (occurrence: US)
  Receive Date: 20130606
  Receipt Date: 20130606
  Transmission Date: 20140414
  Serious: No
  Sender: FDA-Public Use
  Company Number: US-AMGEN-USASP2013002737

PATIENT
  Age: 51 Year
  Sex: Female

DRUGS (7)
  1. PROLIA [Suspect]
     Indication: OSTEOPOROSIS
     Dosage: UNK
     Dates: start: 201112
  2. SYMAX [Concomitant]
  3. NEXIUM                             /01479302/ [Concomitant]
  4. FLORASTOR [Concomitant]
  5. CALCIUM [Concomitant]
  6. VITAMIN D                          /00107901/ [Concomitant]
  7. AMBIEN [Concomitant]

REACTIONS (2)
  - Toothache [Unknown]
  - Tooth infection [Unknown]
